FAERS Safety Report 18170056 (Version 1)
Quarter: 2020Q3

REPORT INFORMATION
  Report Type: Spontaneous
  Country: US (occurrence: US)
  Receive Date: 20200819
  Receipt Date: 20200819
  Transmission Date: 20201103
  Serious: Yes (Death)
  Sender: FDA-Public Use
  Company Number: None

PATIENT
  Age: 94 Year
  Sex: Male
  Weight: 75 kg

DRUGS (1)
  1. REMDESIVIR. [Suspect]
     Active Substance: REMDESIVIR
     Indication: COVID-19 TREATMENT
     Dates: start: 20200814, end: 20200817

REACTIONS (3)
  - Blood creatinine increased [None]
  - Oxygen saturation decreased [None]
  - Acute myocardial infarction [None]

NARRATIVE: CASE EVENT DATE: 20200818
